FAERS Safety Report 8673351 (Version 2)
Quarter: 2012Q4

REPORT INFORMATION
  Report Type: 
  Country: GB (occurrence: GB)
  Receive Date: 20120719
  Receipt Date: 20121010
  Transmission Date: 20130627
  Serious: Yes (Hospitalization)
  Sender: FDA-Public Use
  Company Number: PHFR2012GB004017

PATIENT
  Age: 71 Year
  Sex: Male

DRUGS (2)
  1. CLOZARIL [Suspect]
     Indication: SCHIZOPHRENIA
     Dosage: 400 mg, UNK
     Route: 048
     Dates: start: 20020701, end: 20120711
  2. OLANZAPINE [Concomitant]
     Indication: SCHIZOPHRENIA
     Dosage: 15 mg, UNK
     Route: 048
     Dates: start: 20120718

REACTIONS (8)
  - Urinary tract infection [Recovering/Resolving]
  - Sepsis [Recovering/Resolving]
  - Malaise [Recovering/Resolving]
  - White blood cell count decreased [Recovered/Resolved]
  - White blood cell count increased [Recovering/Resolving]
  - Neutrophilia [Recovered/Resolved]
  - Neutrophil count increased [Recovering/Resolving]
  - Lymphocyte count decreased [Recovered/Resolved]
